FAERS Safety Report 21937415 (Version 1)
Quarter: 2023Q1

REPORT INFORMATION
  Report Type: Spontaneous
  Country: US (occurrence: US)
  Receive Date: 20230201
  Receipt Date: 20230201
  Transmission Date: 20230417
  Serious: Yes (Life-Threatening, Hospitalization)
  Sender: FDA-Public Use
  Company Number: US-JNJFOC-20230155580

PATIENT
  Age: 64 Year
  Sex: Female

DRUGS (1)
  1. HYDROCORTISONE [Suspect]
     Active Substance: HYDROCORTISONE
     Indication: Chronic fatigue syndrome
     Dosage: 2 SQUIRTS OF OTC 1% HYDROCORTISONE CREAM TWICE DAILY , 3 TUBES OF 1 OZ EACH
     Route: 048

REACTIONS (6)
  - Incorrect route of product administration [Unknown]
  - Hypokalaemia [Unknown]
  - Rhabdomyolysis [Unknown]
  - Toxicity to various agents [Unknown]
  - Hyperadrenocorticism [Unknown]
  - Product use in unapproved indication [Unknown]
